FAERS Safety Report 6480044-9 (Version None)
Quarter: 2009Q4

REPORT INFORMATION
  Report Type: 
  Country: None (occurrence: None)
  Receive Date: 20091208
  Receipt Date: 20091120
  Transmission Date: 20100525
  Serious: Yes (Other)
  Sender: FDA-Public Use
  Company Number: PHHY2009FI51045

PATIENT
  Sex: Female

DRUGS (4)
  1. ACLASTA [Suspect]
     Indication: PULMONARY FIBROSIS
     Dosage: UNK
     Dates: start: 20080101
  2. ACLASTA [Suspect]
     Dosage: UNK
     Dates: start: 20091118
  3. LEVOTHYROXINE SODIUM [Concomitant]
  4. CORTISONE [Concomitant]

REACTIONS (8)
  - BONE PAIN [None]
  - HEADACHE [None]
  - LOCAL SWELLING [None]
  - MYALGIA [None]
  - NAUSEA [None]
  - PYREXIA [None]
  - THYROID CANCER [None]
  - THYROID OPERATION [None]
